FAERS Safety Report 6774714-2 (Version None)
Quarter: 2010Q2

REPORT INFORMATION
  Report Type: 
  Country: None (occurrence: None)
  Receive Date: 20100617
  Receipt Date: 20100607
  Transmission Date: 20101027
  Serious: Yes (Other)
  Sender: FDA-Public Use
  Company Number: KR-BRISTOL-MYERS SQUIBB COMPANY-15137367

PATIENT
  Age: 41 Year
  Sex: Male

DRUGS (2)
  1. CISPLATIN [Suspect]
     Indication: URETERIC CANCER
     Dosage: 70MG/M SUP(2)ON DAY 2EVERY 28DAYS.
  2. GEMCITABINE HCL [Suspect]
     Indication: URETERIC CANCER
     Dosage: 1000MG/M SUP(2)ON DAY 1, 8 AND 15 OF CYCLE..

REACTIONS (1)
  - ENTEROCOLITIS [None]
